FAERS Safety Report 16142406 (Version 1)
Quarter: 2019Q1

REPORT INFORMATION
  Report Type: Spontaneous
  Country: US (occurrence: US)
  Receive Date: 20190226
  Receipt Date: 20190226
  Transmission Date: 20190418
  Serious: Yes (Disabling)
  Sender: FDA-Public Use
  Company Number: None

PATIENT
  Age: 81 Year
  Sex: Female
  Weight: 51.71 kg

DRUGS (16)
  1. ELIQUIS [Concomitant]
     Active Substance: APIXABAN
  2. POTASSIUM CL [Concomitant]
     Active Substance: POTASSIUM CHLORIDE
  3. LIPITOR [Concomitant]
     Active Substance: ATORVASTATIN CALCIUM
  4. VITAMIN C [Concomitant]
     Active Substance: ASCORBIC ACID
  5. VITAMIN E [Concomitant]
     Active Substance: .ALPHA.-TOCOPHEROL
  6. AMIODARONE [Suspect]
     Active Substance: AMIODARONE
  7. BREO-1 INHALER [Concomitant]
  8. VITAMIN B12 [Concomitant]
     Active Substance: CYANOCOBALAMIN
  9. FUROSEMIDE. [Concomitant]
     Active Substance: FUROSEMIDE
  10. VITAMIN D3 [Concomitant]
     Active Substance: CHOLECALCIFEROL
  11. P-5-P [Concomitant]
  12. ARNICARE [Concomitant]
     Active Substance: HOMEOPATHICS
  13. ATORVASTATIN [Concomitant]
     Active Substance: ATORVASTATIN
  14. PACEMAKER [Concomitant]
  15. LUTEIN [Concomitant]
     Active Substance: LUTEIN
  16. B6 [Concomitant]
     Active Substance: PYRIDOXINE HYDROCHLORIDE

REACTIONS (11)
  - Pharyngeal oedema [None]
  - Depression [None]
  - Autoscopy [None]
  - Weight decreased [None]
  - Irritability [None]
  - Disturbance in attention [None]
  - Cardiac pacemaker insertion [None]
  - Vision blurred [None]
  - Hyperhidrosis [None]
  - Dysphonia [None]
  - Alopecia [None]

NARRATIVE: CASE EVENT DATE: 20180605
